FAERS Safety Report 5954681-1 (Version None)
Quarter: 2008Q4

REPORT INFORMATION
  Report Type: 
  Country: None (occurrence: None)
  Receive Date: 20081117
  Receipt Date: 20081107
  Transmission Date: 20090506
  Serious: Yes (Hospitalization)
  Sender: FDA-Public Use
  Company Number: PHHY2008JP26626

PATIENT
  Age: 65 Year
  Sex: Female

DRUGS (1)
  1. AREDIA [Suspect]
     Indication: METASTASES TO BONE
     Dosage: 15 MG/DOSE
     Route: 042
     Dates: start: 20060201, end: 20070201

REACTIONS (11)
  - DENTAL IMPLANTATION [None]
  - DEVICE BREAKAGE [None]
  - FALL [None]
  - GINGIVAL SWELLING [None]
  - INJURY [None]
  - OEDEMA [None]
  - OSTEONECROSIS [None]
  - SEQUESTRECTOMY [None]
  - TENDERNESS [None]
  - TOOTH EXTRACTION [None]
  - TOOTH FRACTURE [None]
